FAERS Safety Report 9247865 (Version 1)
Quarter: 2013Q1

REPORT INFORMATION
  Report Type: Spontaneous
  Country: US (occurrence: None)
  Receive Date: 20130305
  Receipt Date: 20130305
  Transmission Date: 20140127
  Serious: Yes (Other)
  Sender: FDA-Public Use
  Company Number: 163-21880-12052907

PATIENT
  Age: 78 Year
  Sex: Male
  Weight: 97.98 kg

DRUGS (13)
  1. REVLIMID [Suspect]
     Indication: PLASMA CELL MYELOMA
     Dosage: 10 MG, 21 IN 28 D, PO
     Route: 048
     Dates: start: 20120307
  2. PROPRANOLOL (PROPRANOLOL) (UNKNOWN) [Concomitant]
     Dosage: 10 MG, 1 IN 1 D, UNK
  3. TERAZOSIN (TERAZOSIN) (UNKNOWN) [Concomitant]
     Dosage: 10 MG, 1 IN 1 D, UNK
  4. CELEXA (CITALOPRAM HYDROBROMIDE) (UNKNOWN) [Concomitant]
     Dosage: 10 MG, 1 IN 1 D, UNK
     Dates: start: 2007
  5. MELATONIN (MELATONIN) (UNKNOWN) [Concomitant]
     Dosage: 10 MG, 1 IN 1 D, UNK
     Dates: start: 2007
  6. PERCOCET (PERCOCET) (UNKNOWN) [Concomitant]
     Dosage: 5 MG, 1-2, Q4-6H, PRN, UNK
     Dates: start: 2007
  7. ZOMETA (ZOLEDRONIC ACID) (UNKNOWN) [Concomitant]
     Dosage: 0.0389 MG, 1 IN 3 M, IV
     Route: 042
     Dates: start: 2011
  8. DEXAMETHASONE (DEXAMETHASONE) (UNKNOWN) [Concomitant]
     Dosage: 40 MG, 1 IN 1 WK, PO
     Route: 048
     Dates: start: 20120412
  9. RESTORIL (TEMAZEPAM) (UNKNOWN) [Concomitant]
     Dosage: 30 MG, PRN, UNK
  10. CLARITIN (LORATADINE) (UNKNOWN) [Concomitant]
     Dosage: 10 MG, PRN, PO
     Route: 048
  11. ASA (ACETYLSALICYLIC ACID) (UNKNOWN) [Concomitant]
     Dosage: 81 MG, 1 IN 1 D, PO
     Route: 048
  12. VITAMIN D (ERGOCALCIFEROL) (UNKNOWN) [Concomitant]
     Dosage: 1000 UNITS, 1 IN 1 D, PO
     Route: 048
  13. VITAMIN B12 (CYANOCOBALAMIN) (UNKNOWN) [Concomitant]
     Dosage: 1000 UG, 1 IN 1 D, PO
     Route: 048

REACTIONS (2)
  - Pancytopenia [None]
  - Pain in extremity [None]
